FAERS Safety Report 6855808-X (Version None)
Quarter: 2010Q3

REPORT INFORMATION
  Report Type: 
  Country: None (occurrence: None)
  Receive Date: 20100715
  Receipt Date: 20100715
  Transmission Date: 20110219
  Serious: No
  Sender: FDA-Public Use
  Company Number: None

PATIENT
  Sex: Male

DRUGS (11)
  1. NEXAVAR [Suspect]
     Indication: RENAL CANCER
     Dosage: 2 BID PO
     Route: 048
     Dates: start: 20100622
  2. NEXAVAR [Suspect]
     Indication: RENAL CANCER
     Dosage: 2 BID PO
     Route: 048
     Dates: start: 20100707
  3. METHYLPRENIDATE [Concomitant]
  4. MAGOXIDE [Concomitant]
  5. VICODIN [Concomitant]
  6. METOPROLOL TARTRATE [Concomitant]
  7. ATROPINE SULFATE [Concomitant]
  8. AMLODIPINE [Concomitant]
  9. LEVOTHYROXINE SODIUM [Concomitant]
  10. LANSOPRAZOLE [Concomitant]
  11. BETIMOL [Concomitant]

REACTIONS (3)
  - DECREASED APPETITE [None]
  - MUSCULAR WEAKNESS [None]
  - WALKING AID USER [None]
